FAERS Safety Report 19419460 (Version 5)
Quarter: 2022Q4

REPORT INFORMATION
  Report Type: Spontaneous
  Country: DE (occurrence: DE)
  Receive Date: 20210615
  Receipt Date: 20221012
  Transmission Date: 20230113
  Serious: Yes (Death, Hospitalization, Other)
  Sender: FDA-Public Use
  Company Number: NVSC2021DE134447

PATIENT
  Age: 59 Year
  Sex: Female

DRUGS (17)
  1. BUDESONIDE [Suspect]
     Active Substance: BUDESONIDE
     Indication: Immunosuppressant drug therapy
     Dosage: 1 ML, QD (250 MG/ML)
     Route: 065
  2. BENDAMUSTINE [Suspect]
     Active Substance: BENDAMUSTINE
     Indication: Follicular lymphoma
     Dosage: UNK
     Route: 065
     Dates: start: 2017
  3. BENDAMUSTINE [Suspect]
     Active Substance: BENDAMUSTINE
     Indication: Follicular lymphoma stage III
  4. PREDNISOLONE [Suspect]
     Active Substance: PREDNISOLONE
     Indication: Immunosuppressant drug therapy
     Dosage: 500 MG (FROM DAY 42-46)
     Route: 042
  5. PREDNISOLONE [Suspect]
     Active Substance: PREDNISOLONE
     Dosage: 20 MG, QD (FROM DAY 47-48)
     Route: 042
  6. PREDNISOLONE [Suspect]
     Active Substance: PREDNISOLONE
     Dosage: 80 MG (TAPERED DOWN ON DAY 51,58
     Route: 042
  7. PREDNISOLONE [Suspect]
     Active Substance: PREDNISOLONE
     Dosage: 60 MG (TAPERED DOWN ON DAY 76)
     Route: 042
  8. PREDNISOLONE [Suspect]
     Active Substance: PREDNISOLONE
     Dosage: 500 MG, QD (ON DAY 85,41)
     Route: 042
  9. PREDNISOLONE [Suspect]
     Active Substance: PREDNISOLONE
     Dosage: 200 MG, QD (TAPERRED DOWN IN DAYS 90-90)
     Route: 042
  10. PREDNISOLONE [Suspect]
     Active Substance: PREDNISOLONE
     Dosage: 100 MG, QD (ON DAY 85)
     Route: 042
  11. PREDNISOLONE [Suspect]
     Active Substance: PREDNISOLONE
     Dosage: 500 MG (ON DAY 50)
     Route: 042
  12. OBINUTUZUMAB [Suspect]
     Active Substance: OBINUTUZUMAB
     Indication: Follicular lymphoma
     Dosage: 1000 MG (D1, D8, D15 OF C1; D1 OF C2-6)
     Route: 065
  13. ATEZOLIZUMAB [Suspect]
     Active Substance: ATEZOLIZUMAB
     Indication: Follicular lymphoma
     Dosage: 1200 MG (D1 OF C2-6)
     Route: 065
  14. TOCILIZUMAB [Suspect]
     Active Substance: TOCILIZUMAB
     Indication: Immunosuppressant drug therapy
     Dosage: 3000 MG(ON DAY 44 AND DAY 85)
     Route: 042
  15. POLATUZUMAB VEDOTIN [Suspect]
     Active Substance: POLATUZUMAB VEDOTIN
     Indication: Follicular lymphoma
     Dosage: 1.8 MG/KG, CYCLIC (1.8 MG/KG (D1 OF CYC 1-6)
     Route: 065
  16. ENVARSUS XR [Suspect]
     Active Substance: TACROLIMUS
     Indication: Immunosuppressant drug therapy
     Dosage: 2 MG, BID (ON DAY 56)
     Route: 048
  17. ENVARSUS XR [Suspect]
     Active Substance: TACROLIMUS
     Dosage: 1 MG, BID (TAPERED DOWN ON DAY 61)
     Route: 048

REACTIONS (11)
  - Bronchopulmonary aspergillosis [Fatal]
  - Erythema [Recovering/Resolving]
  - Conjunctivitis [Recovering/Resolving]
  - Cytomegalovirus infection [Unknown]
  - Pneumonitis [Not Recovered/Not Resolved]
  - Stomatitis [Recovering/Resolving]
  - Disease progression [Unknown]
  - Guillain-Barre syndrome [Unknown]
  - Hypertransaminasaemia [Unknown]
  - Pulmonary embolism [Unknown]
  - Product use in unapproved indication [Unknown]
